FAERS Safety Report 16962558 (Version 1)
Quarter: 2019Q4

REPORT INFORMATION
  Report Type: Spontaneous
  Country: US (occurrence: US)
  Receive Date: 20191025
  Receipt Date: 20191025
  Transmission Date: 20200122
  Serious: Yes (Other)
  Sender: FDA-Public Use
  Company Number: US-BAUSCH-BL-2019-058942

PATIENT
  Sex: Female
  Weight: 88.08 kg

DRUGS (2)
  1. DILTIAZEM HCL ER 120MG [Suspect]
     Active Substance: DILTIAZEM HYDROCHLORIDE
     Dosage: CURRENT BOTTLE;
     Route: 048
     Dates: start: 201909
  2. DILTIAZEM HCL ER 120MG [Suspect]
     Active Substance: DILTIAZEM HYDROCHLORIDE
     Indication: HYPERTENSION
     Dosage: STARTED ABOUT 8 MONTHS AGO
     Dates: start: 2019, end: 201909

REACTIONS (3)
  - Product quality issue [Unknown]
  - Upper respiratory tract infection [Not Recovered/Not Resolved]
  - Blood pressure inadequately controlled [Not Recovered/Not Resolved]

NARRATIVE: CASE EVENT DATE: 2019
